FAERS Safety Report 7982139-7 (Version None)
Quarter: 2011Q4

REPORT INFORMATION
  Report Type: 
  Country: None (occurrence: None)
  Receive Date: 20111214
  Receipt Date: 20111214
  Transmission Date: 20120403
  Serious: Yes (Death)
  Sender: FDA-Public Use
  Company Number: None

PATIENT
  Age: 76 Year
  Sex: Male

DRUGS (1)
  1. SPRYCEL [Suspect]
     Indication: LEUKAEMIA
     Dosage: 100MG QD PO
     Route: 048
     Dates: start: 20110706

REACTIONS (1)
  - UNEVALUABLE EVENT [None]
